FAERS Safety Report 15783976 (Version 1)
Quarter: 2019Q1

REPORT INFORMATION
  Report Type: Report from Study
  Country: None (occurrence: US)
  Receive Date: 20190103
  Receipt Date: 20190103
  Transmission Date: 20190417
  Serious: Yes (Other)
  Sender: FDA-Public Use
  Company Number: US-ABBVIE-18K-163-2609097-00

PATIENT
  Sex: Female

DRUGS (2)
  1. HUMIRA [Suspect]
     Active Substance: ADALIMUMAB
     Indication: RHEUMATOID ARTHRITIS
     Route: 058
  2. HUMIRA [Suspect]
     Active Substance: ADALIMUMAB
     Indication: ANKYLOSING SPONDYLITIS

REACTIONS (6)
  - Arthralgia [Unknown]
  - Osteoarthritis [Not Recovered/Not Resolved]
  - Rheumatoid arthritis [Recovering/Resolving]
  - Hypoaesthesia [Not Recovered/Not Resolved]
  - Sensitivity to weather change [Unknown]
  - Spinal disorder [Not Recovered/Not Resolved]
